FAERS Safety Report 4588885-X (Version None)
Quarter: 2005Q1

REPORT INFORMATION
  Report Type: 
  Country: None (occurrence: None)
  Receive Date: 20050216
  Receipt Date: 20050202
  Transmission Date: 20050727
  Serious: Yes (Hospitalization)
  Sender: FDA-Public Use
  Company Number: REM_00082_2005

PATIENT
  Age: 48 Year
  Sex: Female
  Weight: 36 kg

DRUGS (6)
  1. REMODULIN [Suspect]
     Indication: PULMONARY HYPERTENSION
     Dosage: 22 NG/KG/MIN CONTINUOUS SC
     Route: 058
     Dates: start: 20041115, end: 20041201
  2. TYLENOL (CAPLET) [Concomitant]
  3. COUMADIN [Concomitant]
  4. TRACLEER [Concomitant]
  5. OXYGEN [Concomitant]
  6. MULTI-VITAMINS [Concomitant]

REACTIONS (1)
  - INFUSION SITE PAIN [None]
